FAERS Safety Report 8266682 (Version 2)
Quarter: 2012Q4

REPORT INFORMATION
  Report Type: Report from Study
  Country: JP (occurrence: JP)
  Receive Date: 20111129
  Receipt Date: 20121001
  Transmission Date: 20130627
  Serious: Yes (Hospitalization, Other)
  Sender: FDA-Public Use
  Company Number: JP-CELGENEUS-087-50794-11113106

PATIENT
  Age: 80 Year
  Sex: Male
  Weight: 46 kg

DRUGS (10)
  1. VIDAZA [Suspect]
     Indication: MDS
     Dosage: 100 Milligram
     Route: 041
     Dates: start: 20110608, end: 20110614
  2. MAGMITT [Concomitant]
     Indication: DRUG USE FOR UNKNOWN INDICATION
     Route: 065
  3. PRIMPERAN [Concomitant]
     Indication: DRUG USE FOR UNKNOWN INDICATION
     Route: 065
     Dates: start: 20110608, end: 20110614
  4. NASEA [Concomitant]
     Indication: DRUG USE FOR UNKNOWN INDICATION
     Route: 065
     Dates: start: 20110608, end: 20110608
  5. PRIMOBOLAN [Concomitant]
     Indication: DRUG USE FOR UNKNOWN INDICATION
     Route: 065
  6. NATRIX [Concomitant]
     Indication: DRUG USE FOR UNKNOWN INDICATION
     Route: 065
  7. GAMOFA D [Concomitant]
     Indication: DRUG USE FOR UNKNOWN INDICATION
     Route: 065
  8. LEVOFLOXACIN HYDRATE [Concomitant]
     Indication: DRUG USE FOR UNKNOWN INDICATION
     Route: 065
     Dates: start: 20110609, end: 20110612
  9. MEROPENEM [Concomitant]
     Indication: DRUG USE FOR UNKNOWN INDICATION
     Route: 065
     Dates: start: 20110617, end: 20110627
  10. ADONA [Concomitant]
     Indication: DRUG USE FOR UNKNOWN INDICATION
     Route: 065
     Dates: start: 20110613, end: 20110613

REACTIONS (3)
  - C-reactive protein increased [Recovering/Resolving]
  - Sepsis [Recovered/Resolved]
  - White blood cell count decreased [Recovered/Resolved]
